FAERS Safety Report 5255298-7 (Version None)
Quarter: 2007Q1

REPORT INFORMATION
  Report Type: 
  Country: None (occurrence: None)
  Receive Date: 20070305
  Receipt Date: 20070301
  Transmission Date: 20070707
  Serious: Yes (Other)
  Sender: FDA-Public Use
  Company Number: US-GLAXOSMITHKLINE-A0641512A

PATIENT
  Age: 60 Year
  Sex: Female

DRUGS (1)
  1. FLOVENT [Suspect]
     Indication: ASTHMA
     Dosage: 1SPR TWICE PER DAY
     Route: 055
     Dates: start: 20060301

REACTIONS (3)
  - DYSPHONIA [None]
  - DYSPNOEA [None]
  - EOSINOPHILIC PNEUMONIA [None]
